FAERS Safety Report 7112645-9 (Version None)
Quarter: 2010Q4

REPORT INFORMATION
  Report Type: 
  Country: None (occurrence: None)
  Receive Date: 20101119
  Receipt Date: 20101115
  Transmission Date: 20110411
  Serious: Yes (Other)
  Sender: FDA-Public Use
  Company Number: IT-SOLVAY-00210006465

PATIENT
  Age: 55 Year
  Sex: Male

DRUGS (4)
  1. PERINDOPRIL [Suspect]
     Indication: HYPERTENSION
     Dosage: DAILY DOSE:  UNKNOWN
     Route: 065
  2. ETORICOXIB [Interacting]
     Indication: PERIARTHRITIS
     Dosage: DAILY DOSE:  UNKNOWN
     Route: 065
  3. LANSOPRAZOLE [Concomitant]
     Indication: GASTRITIS
     Dosage: DAILY DOSE:  UNKNOWN
     Route: 065
  4. HYDROCHLOROTHIAZIDE [Concomitant]
     Indication: HYPERTENSION
     Dosage: DAILY DOSE:  UNKNOWN
     Route: 065

REACTIONS (5)
  - DIZZINESS [None]
  - DRUG INTERACTION [None]
  - HEADACHE [None]
  - HYPERTENSION [None]
  - TINNITUS [None]
